FAERS Safety Report 13037152 (Version 1)
Quarter: 2016Q4

REPORT INFORMATION
  Report Type: Report from Study
  Country: US (occurrence: US)
  Receive Date: 20161216
  Receipt Date: 20161216
  Transmission Date: 20170207
  Serious: Yes (Hospitalization)
  Sender: FDA-Public Use
  Company Number: US-GILEAD-2016-0248954

PATIENT
  Age: 60 Year
  Sex: Male

DRUGS (4)
  1. RIBAVIRIN. [Concomitant]
     Active Substance: RIBAVIRIN
  2. SOFOSBUVIR [Suspect]
     Active Substance: SOFOSBUVIR
     Indication: HEPATITIS C
     Dosage: 400 MG, UNK
     Route: 048
     Dates: start: 20160623, end: 20161208
  3. LACTULOSE. [Concomitant]
     Active Substance: LACTULOSE
  4. DAKLINZA [Concomitant]
     Active Substance: DACLATASVIR

REACTIONS (3)
  - Fluid retention [Unknown]
  - Confusional state [Unknown]
  - Blood pressure decreased [Recovered/Resolved]

NARRATIVE: CASE EVENT DATE: 20161014
